FAERS Safety Report 14542253 (Version 1)
Quarter: 2018Q1

REPORT INFORMATION
  Report Type: Spontaneous
  Country: IE (occurrence: IE)
  Receive Date: 20180216
  Receipt Date: 20180216
  Transmission Date: 20180509
  Serious: Yes (Other)
  Sender: FDA-Public Use
  Company Number: IE-OTSUKA-DJ201300243

PATIENT
  Age: 22 Year
  Sex: Female

DRUGS (5)
  1. PALIPERIDONE. [Suspect]
     Active Substance: PALIPERIDONE
     Indication: PSYCHOTIC DISORDER
  2. ABILIFY [Suspect]
     Active Substance: ARIPIPRAZOLE
     Indication: PSYCHOTIC DISORDER
  3. PAROXETINE. [Concomitant]
     Active Substance: PAROXETINE
     Indication: DEPRESSION
     Dosage: 40 MG, QD
     Route: 065
  4. PALIPERIDONE. [Suspect]
     Active Substance: PALIPERIDONE
     Indication: SCHIZOPHRENIA
     Dosage: 75 MG, UNK
     Route: 030
     Dates: start: 201203, end: 20120724
  5. ABILIFY [Suspect]
     Active Substance: ARIPIPRAZOLE
     Indication: SCHIZOPHRENIA
     Dosage: 13 MG, UNK
     Route: 065

REACTIONS (5)
  - Blood prolactin increased [Unknown]
  - Galactorrhoea [Recovered/Resolved]
  - Psychotic disorder [Unknown]
  - Depressed mood [Unknown]
  - Psychotic symptom [Unknown]

NARRATIVE: CASE EVENT DATE: 201207
